FAERS Safety Report 26092282 (Version 1)
Quarter: 2025Q4

REPORT INFORMATION
  Report Type: Spontaneous
  Country: US (occurrence: None)
  Receive Date: 20251125
  Receipt Date: 20251125
  Transmission Date: 20260118
  Serious: Yes (Hospitalization, Disabling)
  Sender: FDA-CTU
  Company Number: None

PATIENT
  Age: 34 Year
  Sex: Female
  Weight: 144 kg

DRUGS (1)
  1. SPRAVATO [Suspect]
     Active Substance: ESKETAMINE
     Indication: Depression
     Dosage: OTHER FREQUENCY : TWICE A WEEK;?
     Route: 055
     Dates: start: 20240314, end: 20241001

REACTIONS (5)
  - Psychotic disorder [None]
  - Delusion [None]
  - Paranoia [None]
  - Hallucinations, mixed [None]
  - Therapy interrupted [None]

NARRATIVE: CASE EVENT DATE: 20241001
